FAERS Safety Report 8005880-9 (Version None)
Quarter: 2011Q4

REPORT INFORMATION
  Report Type: 
  Country: None (occurrence: None)
  Receive Date: 20111223
  Receipt Date: 20111214
  Transmission Date: 20120403
  Serious: Yes (Hospitalization)
  Sender: FDA-Public Use
  Company Number: BR-ASTRAZENECA-2011SE14062

PATIENT
  Age: 13 Year
  Sex: Male
  Weight: 47 kg

DRUGS (4)
  1. HUMIRA [Suspect]
     Indication: CROHN'S DISEASE
     Route: 065
     Dates: end: 20110201
  2. MESALAMINE [Suspect]
     Indication: CROHN'S DISEASE
     Route: 065
     Dates: end: 20110201
  3. ENTOCORT EC [Suspect]
     Indication: CROHN'S DISEASE
     Route: 048
  4. ENTOCORT EC [Suspect]
     Route: 048
     Dates: start: 20100101, end: 20111101

REACTIONS (4)
  - WEIGHT DECREASED [None]
  - DRUG PRESCRIBING ERROR [None]
  - RASH ERYTHEMATOUS [None]
  - MALNUTRITION [None]
